FAERS Safety Report 6455367-X (Version None)
Quarter: 2009Q4

REPORT INFORMATION
  Report Type: 
  Country: None (occurrence: None)
  Receive Date: 20091125
  Receipt Date: 20091119
  Transmission Date: 20100525
  Serious: Yes (Hospitalization)
  Sender: FDA-Public Use
  Company Number: US-ABBOTT-09P-163-0609668-00

PATIENT
  Sex: Female
  Weight: 89.892 kg

DRUGS (6)
  1. HUMIRA [Suspect]
     Indication: RHEUMATOID ARTHRITIS
     Route: 058
     Dates: start: 20060101, end: 20080101
  2. HUMIRA [Suspect]
     Route: 058
     Dates: start: 20040101, end: 20060101
  3. HUMIRA [Suspect]
     Route: 058
     Dates: start: 20090601, end: 20090601
  4. PREDNISONE [Concomitant]
     Indication: RHEUMATOID ARTHRITIS
     Dates: start: 20040101, end: 20060101
  5. PREDNISONE [Concomitant]
     Dosage: TAPERED DOWN
     Dates: start: 20060101
  6. DVAP [Concomitant]
     Indication: DRUG USE FOR UNKNOWN INDICATION
     Dates: start: 20080101

REACTIONS (8)
  - BONE DISORDER [None]
  - CRANIOPHARYNGIOMA [None]
  - CUSHINGOID [None]
  - DIABETES INSIPIDUS [None]
  - DIPLOPIA [None]
  - FATIGUE [None]
  - MENINGITIS [None]
  - ONCOLOGIC COMPLICATION [None]
